FAERS Safety Report 8827093 (Version 1)
Quarter: 2012Q4

REPORT INFORMATION
  Report Type: Report from Study
  Country: GB (occurrence: GB)
  Receive Date: 20121007
  Receipt Date: 20121007
  Transmission Date: 20130627
  Serious: Yes (Other)
  Sender: FDA-Public Use
  Company Number: GB-US-EMD SERONO, INC.-7160681

PATIENT
  Sex: Female

DRUGS (1)
  1. REBIF [Suspect]
     Indication: PRODUCT USED FOR UNKNOWN INDICATION
     Route: 058
     Dates: start: 20060912

REACTIONS (4)
  - Optic neuritis [Unknown]
  - Blindness transient [Recovered/Resolved]
  - Multiple sclerosis relapse [Unknown]
  - Injection site erythema [Unknown]
